FAERS Safety Report 9248822 (Version 1)
Quarter: 2013Q2

REPORT INFORMATION
  Report Type: Spontaneous
  Country: FR (occurrence: FR)
  Receive Date: 20130423
  Receipt Date: 20130423
  Transmission Date: 20140414
  Serious: Yes (Hospitalization)
  Sender: FDA-Public Use
  Company Number: FR-SANOFI-AVENTIS-2013SA038240

PATIENT
  Age: 99 Year
  Sex: Female

DRUGS (6)
  1. STILNOX [Suspect]
     Indication: PRODUCT USED FOR UNKNOWN INDICATION
     Route: 048
     Dates: end: 20130228
  2. SEROPLEX [Suspect]
     Indication: PRODUCT USED FOR UNKNOWN INDICATION
     Route: 048
     Dates: start: 2013, end: 20130228
  3. FUROSEMIDE [Concomitant]
     Route: 048
     Dates: start: 201104
  4. DIGOXINE [Concomitant]
     Dosage: 0.125 MG 1TABLET 5 DAYS /7DAYS
     Route: 048
     Dates: start: 2011
  5. PREVISCAN [Concomitant]
     Dosage: 1/2 TABLET = 10 MG EVERY DAY EXCEPT THREE FOURTH TABLET = 15 MG ON TUESDAY AND FRIDAY
     Route: 048
  6. CALCIUM/COLECALCIFEROL [Concomitant]
     Dosage: 1 BAG ON TUESDAY AND ON FRIDAY

REACTIONS (2)
  - Hyponatraemia [Recovered/Resolved]
  - Confusional state [Recovered/Resolved]
